FAERS Safety Report 11114137 (Version 3)
Quarter: 2015Q2

REPORT INFORMATION
  Report Type: Report from Study
  Country: KE (occurrence: KE)
  Receive Date: 20150514
  Receipt Date: 20150603
  Transmission Date: 20150821
  Serious: Yes (Death, Hospitalization, Disabling, Other)
  Sender: FDA-Public Use
  Company Number: KE-GILEAD-2015-0152379

PATIENT
  Age: 46 Year
  Sex: Female
  Weight: 35.7 kg

DRUGS (19)
  1. RALTEGRAVIR [Suspect]
     Active Substance: RALTEGRAVIR
     Indication: HIV INFECTION
     Dosage: UNK
     Route: 065
     Dates: start: 20150204, end: 20150415
  2. PYRAZINAMIDE. [Suspect]
     Active Substance: PYRAZINAMIDE
     Indication: TUBERCULOSIS
     Dosage: 400 MG, TID
     Route: 065
     Dates: start: 20150107, end: 20150218
  3. RIFAMPICIN [Suspect]
     Active Substance: RIFAMPIN
     Indication: TUBERCULOSIS
     Dosage: 150 MG, TID
     Route: 065
     Dates: start: 20150107, end: 20150218
  4. ISONIAZID. [Suspect]
     Active Substance: ISONIAZID
     Indication: TUBERCULOSIS
     Dosage: 75 MG, UNK
     Route: 065
     Dates: start: 20150107, end: 20150218
  5. ISONIAZID. [Suspect]
     Active Substance: ISONIAZID
     Dosage: 3 DF, UNK
     Dates: start: 20150306
  6. ISONIAZID. [Suspect]
     Active Substance: ISONIAZID
     Dosage: 2 DF, QD
     Route: 065
     Dates: start: 20150427
  7. RIFAMPICIN [Suspect]
     Active Substance: RIFAMPIN
     Dosage: 3 DF, QD
     Dates: start: 20150306
  8. PYRAZINAMIDE. [Suspect]
     Active Substance: PYRAZINAMIDE
     Dosage: UNK
     Dates: start: 20150306, end: 20150330
  9. EMTRICITABINE/TENOFOVIR DISOPROXIL FUMARATE [Suspect]
     Active Substance: EMTRICITABINE\TENOFOVIR DISOPROXIL
     Dosage: 1 UNK, UNK
     Route: 065
     Dates: start: 20150511
  10. SEPTRIN [Suspect]
     Active Substance: SULFAMETHOXAZOLE\TRIMETHOPRIM
     Indication: PRODUCT USED FOR UNKNOWN INDICATION
     Dosage: UNK
     Route: 065
     Dates: start: 20150109
  11. EMTRICITABINE/TENOFOVIR DISOPROXIL FUMARATE [Suspect]
     Active Substance: EMTRICITABINE\TENOFOVIR DISOPROXIL
     Indication: HIV INFECTION
     Dosage: 1 DF, UNK
     Route: 065
     Dates: start: 20150121
  12. ONDANSETRON                        /00955302/ [Concomitant]
     Indication: VOMITING
     Dosage: 8 MG, BID
     Route: 065
     Dates: start: 20150424, end: 20150427
  13. RIFAMPICIN [Suspect]
     Active Substance: RIFAMPIN
     Dosage: 2 DF, QD
     Route: 065
     Dates: start: 20150427
  14. ETHAMBUTOL [Suspect]
     Active Substance: ETHAMBUTOL HYDROCHLORIDE
     Dosage: UNK
     Dates: start: 20150306, end: 20150330
  15. PYRIDOXINE [Suspect]
     Active Substance: PYRIDOXINE
     Indication: PRODUCT USED FOR UNKNOWN INDICATION
     Dosage: UNK
     Route: 065
     Dates: start: 20150107
  16. EFAVIRENZ [Suspect]
     Active Substance: EFAVIRENZ
     Indication: HIV INFECTION
     Dosage: 600 MG, QD
     Route: 065
     Dates: start: 20150121
  17. EFAVIRENZ [Suspect]
     Active Substance: EFAVIRENZ
     Dosage: 400 UNK, UNK
     Route: 065
     Dates: start: 20150220
  18. ETHAMBUTOL [Suspect]
     Active Substance: ETHAMBUTOL HYDROCHLORIDE
     Indication: TUBERCULOSIS
     Dosage: 275 MG, TID
     Route: 065
     Dates: start: 20150107, end: 20150218
  19. DEXTROSE SALINE [Concomitant]
     Active Substance: DEXTROSE\SODIUM CHLORIDE
     Indication: DEHYDRATION
     Route: 042

REACTIONS (5)
  - Cachexia [Fatal]
  - Pulmonary tuberculosis [Fatal]
  - Hepatitis B [Fatal]
  - Drug-induced liver injury [Fatal]
  - Acute kidney injury [Fatal]

NARRATIVE: CASE EVENT DATE: 20150212
